FAERS Safety Report 14685452 (Version 1)
Quarter: 2018Q1

REPORT INFORMATION
  Report Type: Spontaneous
  Country: US (occurrence: US)
  Receive Date: 20180327
  Receipt Date: 20180327
  Transmission Date: 20180509
  Serious: No
  Sender: FDA-Public Use
  Company Number: US-009507513-1803USA010744

PATIENT
  Age: 22 Year
  Sex: Female
  Weight: 59.86 kg

DRUGS (2)
  1. CONCERTA [Concomitant]
     Active Substance: METHYLPHENIDATE HYDROCHLORIDE
  2. NEXPLANON [Suspect]
     Active Substance: ETONOGESTREL
     Indication: CONTRACEPTION
     Dosage: 3 YEARS OLD
     Route: 059
     Dates: start: 20150511

REACTIONS (2)
  - Menorrhagia [Unknown]
  - Amenorrhoea [Unknown]
